FAERS Safety Report 10968838 (Version 1)
Quarter: 2015Q1

REPORT INFORMATION
  Report Type: Spontaneous
  Country: UG (occurrence: UG)
  Receive Date: 20150331
  Receipt Date: 20150331
  Transmission Date: 20150721
  Serious: Yes (Life-Threatening)
  Sender: FDA-Public Use
  Company Number: UG-CIPLA LTD.-2015UG02471

PATIENT

DRUGS (4)
  1. LAMIVUDINE. [Suspect]
     Active Substance: LAMIVUDINE
     Indication: HIV TEST POSITIVE
  2. NEVIRAPINE. [Suspect]
     Active Substance: NEVIRAPINE
  3. ZIDOVUDINE. [Suspect]
     Active Substance: ZIDOVUDINE
     Indication: HIV TEST POSITIVE
  4. TENOFOVIR DISOPROXIL FUMARATE [Suspect]
     Active Substance: TENOFOVIR DISOPROXIL FUMARATE
     Indication: HIV TEST POSITIVE

REACTIONS (3)
  - Protein urine present [None]
  - Pyuria [None]
  - Urinary sediment present [None]
